FAERS Safety Report 7930805-1 (Version None)
Quarter: 2011Q4

REPORT INFORMATION
  Report Type: 
  Country: None (occurrence: None)
  Receive Date: 20111121
  Receipt Date: 20111114
  Transmission Date: 20120403
  Serious: Yes (Hospitalization)
  Sender: FDA-Public Use
  Company Number: JP-GLAXOSMITHKLINE-B0763437A

PATIENT
  Age: 69 Year
  Sex: Female

DRUGS (6)
  1. VALPROATE SODIUM [Concomitant]
     Route: 048
  2. LENDORMIN [Concomitant]
     Route: 048
  3. ROHYPNOL [Concomitant]
     Route: 065
  4. LAMICTAL [Suspect]
     Indication: BIPOLAR II DISORDER
     Route: 048
  5. ESTAZOLAM [Concomitant]
     Route: 048
  6. LAMICTAL [Suspect]
     Dosage: 50MG PER DAY
     Route: 048
     Dates: end: 20111109

REACTIONS (3)
  - ACCIDENTAL OVERDOSE [None]
  - ALTERED STATE OF CONSCIOUSNESS [None]
  - COGNITIVE DISORDER [None]
